FAERS Safety Report 17934569 (Version 1)
Quarter: 2020Q2

REPORT INFORMATION
  Report Type: Spontaneous
  Country: US (occurrence: US)
  Receive Date: 20200623
  Receipt Date: 20200623
  Transmission Date: 20200714
  Serious: Yes (Hospitalization)
  Sender: FDA-Public Use
  Company Number: None

PATIENT
  Age: 73 Year
  Sex: Male
  Weight: 111 kg

DRUGS (15)
  1. PRAVASTATIN. [Concomitant]
     Active Substance: PRAVASTATIN
  2. TORSEMIDE. [Concomitant]
     Active Substance: TORSEMIDE
  3. EZETIMIBE. [Concomitant]
     Active Substance: EZETIMIBE
  4. VASCEPA [Concomitant]
     Active Substance: ICOSAPENT ETHYL
  5. AMITRIPTYLINE 25MG [Concomitant]
     Active Substance: AMITRIPTYLINE
  6. LEVEMIR [Concomitant]
     Active Substance: INSULIN DETEMIR
  7. HYDRALAZINE 50MG [Concomitant]
  8. ISOSORBIDE DINITRATE. [Concomitant]
     Active Substance: ISOSORBIDE DINITRATE
  9. PANTOPRAZOLE 40MG [Concomitant]
     Active Substance: PANTOPRAZOLE SODIUM
  10. CARVEDIOLOL 25MG [Concomitant]
  11. OZEMPIC 0.25MG [Concomitant]
  12. FALX OIL [Concomitant]
  13. ELIQUIS [Suspect]
     Active Substance: APIXABAN
     Indication: ATRIAL FIBRILLATION
     Route: 048
     Dates: start: 20181119, end: 20200621
  14. ASPIRIN 81MG [Concomitant]
     Active Substance: ASPIRIN
  15. GABAPENTINE [Concomitant]
     Active Substance: GABAPENTIN

REACTIONS (3)
  - Cardiac failure congestive [None]
  - Large intestine polyp [None]
  - Gastrointestinal haemorrhage [None]

NARRATIVE: CASE EVENT DATE: 20200621
